FAERS Safety Report 15658924 (Version 1)
Quarter: 2018Q4

REPORT INFORMATION
  Report Type: Report from Study
  Country: None (occurrence: FR)
  Receive Date: 20181126
  Receipt Date: 20181126
  Transmission Date: 20190205
  Serious: Yes (Death, Hospitalization, Other)
  Sender: FDA-Public Use
  Company Number: FR-ABBVIE-18S-056-2564816-00

PATIENT
  Age: 57 Year
  Sex: Male
  Weight: 77 kg

DRUGS (8)
  1. SKENAN [Suspect]
     Active Substance: MORPHINE SULFATE
     Indication: PRODUCT USED FOR UNKNOWN INDICATION
     Route: 065
     Dates: end: 20150316
  2. MOVICOL [Suspect]
     Active Substance: POLYETHYLENE GLYCOL 3350\POTASSIUM CHLORIDE\SODIUM BICARBONATE\SODIUM CHLORIDE
     Indication: PRODUCT USED FOR UNKNOWN INDICATION
     Route: 065
     Dates: end: 20150316
  3. EXVIERA [Suspect]
     Active Substance: DASABUVIR
     Indication: HEPATITIS C
     Route: 048
     Dates: start: 20130429, end: 20130714
  4. SYMBICORT [Suspect]
     Active Substance: BUDESONIDE\FORMOTEROL FUMARATE DIHYDRATE
     Indication: BRONCHITIS CHRONIC
     Route: 065
     Dates: start: 19910101
  5. RIBAVIRIN. [Suspect]
     Active Substance: RIBAVIRIN
     Indication: HEPATITIS C
     Route: 065
     Dates: start: 20130429, end: 20130714
  6. VIEKIRAX [Suspect]
     Active Substance: OMBITASVIR\PARITAPREVIR\RITONAVIR
     Indication: HEPATITIS C
     Route: 048
     Dates: start: 20130429, end: 20130714
  7. SEVREDOL [Suspect]
     Active Substance: MORPHINE
     Indication: PRODUCT USED FOR UNKNOWN INDICATION
     Dosage: 10 MG IF NEEDED
     Route: 065
     Dates: end: 20150316
  8. GUTRON [Suspect]
     Active Substance: MIDODRINE
     Indication: PRODUCT USED FOR UNKNOWN INDICATION
     Route: 065
     Dates: end: 20150316

REACTIONS (32)
  - Hepatic failure [Unknown]
  - Agitation [Unknown]
  - Hepatic encephalopathy [Unknown]
  - Ascites [Unknown]
  - Portal vein thrombosis [Unknown]
  - Acute kidney injury [Unknown]
  - Confusional state [Unknown]
  - Asterixis [Unknown]
  - Tumour thrombosis [Unknown]
  - Hyponatraemia [Unknown]
  - Haematemesis [Unknown]
  - General physical health deterioration [Unknown]
  - General physical health deterioration [Unknown]
  - Abdominal pain [Unknown]
  - Asterixis [Unknown]
  - Hepatocellular carcinoma [Unknown]
  - Tachypnoea [Unknown]
  - Hepatic necrosis [Unknown]
  - Vomiting [Unknown]
  - Ascites [Unknown]
  - Anxiety [Unknown]
  - Diarrhoea [Unknown]
  - Hepatic encephalopathy [Unknown]
  - Sepsis [Unknown]
  - Pleural effusion [Unknown]
  - Nausea [Unknown]
  - Hepatocellular carcinoma [Fatal]
  - Hepatic failure [Unknown]
  - Abdominal pain [Unknown]
  - Urinary tract infection staphylococcal [Unknown]
  - Hepatic cirrhosis [Unknown]
  - Varices oesophageal [Unknown]

NARRATIVE: CASE EVENT DATE: 201308
